FAERS Safety Report 17569436 (Version 8)
Quarter: 2020Q3

REPORT INFORMATION
  Report Type: Spontaneous
  Country: US (occurrence: US)
  Receive Date: 20200323
  Receipt Date: 20200925
  Transmission Date: 20201102
  Serious: Yes (Hospitalization, Other)
  Sender: FDA-Public Use
  Company Number: US-BEH-2020114521

PATIENT
  Age: 64 Year
  Sex: Female
  Weight: 68.03 kg

DRUGS (5)
  1. HIZENTRA [Suspect]
     Active Substance: HUMAN IMMUNOGLOBULIN G
     Indication: CHRONIC INFLAMMATORY DEMYELINATING POLYRADICULONEUROPATHY
     Dosage: 10 MILLIGRAM, QW
     Route: 058
     Dates: start: 201910
  2. HIZENTRA [Suspect]
     Active Substance: HUMAN IMMUNOGLOBULIN G
     Dosage: 30 GRAM
     Route: 058
     Dates: start: 201911
  3. LEVAQUIN [Concomitant]
     Active Substance: LEVOFLOXACIN
     Route: 065
  4. HIZENTRA [Suspect]
     Active Substance: HUMAN IMMUNOGLOBULIN G
     Dosage: 0.4 GRAM PER KILOGRAM
     Route: 058
     Dates: start: 20191101
  5. HIZENTRA [Suspect]
     Active Substance: HUMAN IMMUNOGLOBULIN G
     Dosage: 10 MILLIGRAM
     Route: 058
     Dates: start: 20200301

REACTIONS (26)
  - Drug ineffective [Not Recovered/Not Resolved]
  - Haematochezia [Unknown]
  - Drug ineffective [Unknown]
  - Gastrointestinal haemorrhage [Unknown]
  - Gastrointestinal oedema [Unknown]
  - Chronic inflammatory demyelinating polyradiculoneuropathy [Unknown]
  - Limb operation [Unknown]
  - Infusion site extravasation [Unknown]
  - Infusion site haemorrhage [Unknown]
  - Dizziness [Not Recovered/Not Resolved]
  - Diarrhoea [Unknown]
  - Vomiting projectile [Unknown]
  - Infusion site bruising [Unknown]
  - Chronic inflammatory demyelinating polyradiculoneuropathy [Unknown]
  - Vein collapse [Unknown]
  - Chronic inflammatory demyelinating polyradiculoneuropathy [Not Recovered/Not Resolved]
  - Slow speech [Not Recovered/Not Resolved]
  - Pyrexia [Recovered/Resolved]
  - Loss of consciousness [Recovered/Resolved]
  - Infusion site swelling [Unknown]
  - Hypoaesthesia [Not Recovered/Not Resolved]
  - Nerve degeneration [Unknown]
  - Injection site erythema [Unknown]
  - Injection site swelling [Unknown]
  - Abdominal pain [Unknown]
  - Infusion site haemorrhage [Not Recovered/Not Resolved]

NARRATIVE: CASE EVENT DATE: 2019
